FAERS Safety Report 16134944 (Version 1)
Quarter: 2019Q1

REPORT INFORMATION
  Report Type: Spontaneous
  Country: DK (occurrence: DK)
  Receive Date: 20190329
  Receipt Date: 20190329
  Transmission Date: 20190418
  Serious: Yes (Hospitalization)
  Sender: FDA-Public Use
  Company Number: DK-PFIZER INC-2019132650

PATIENT
  Age: 71 Year
  Sex: Female

DRUGS (5)
  1. PARACETAMOL [Concomitant]
     Active Substance: ACETAMINOPHEN
     Indication: PAIN
     Dosage: 1000 MG, AS NEEDED (MAX 4 TIMES/DAILY)
     Route: 048
     Dates: start: 20171017
  2. LETROZOLE. [Concomitant]
     Active Substance: LETROZOLE
     Indication: BREAST CANCER
     Dosage: 2.5 MG, 1X/DAY
     Route: 048
     Dates: start: 20171102
  3. ZOLEDRONIC ACID [Suspect]
     Active Substance: ZOLEDRONIC ACID
     Indication: BREAST CANCER METASTATIC
     Dosage: 4 MG, EVERY 4 WEEKS
     Route: 042
     Dates: start: 20171206, end: 20181029
  4. PALBOCICLIB [Concomitant]
     Active Substance: PALBOCICLIB
     Indication: BREAST CANCER
     Dosage: 75 MG, 1X/DAY
     Route: 048
     Dates: start: 20171206
  5. UNIKALK FORTE [Concomitant]
     Indication: VITAMIN SUPPLEMENTATION
     Dosage: UNK
     Route: 048
     Dates: start: 20170313

REACTIONS (6)
  - Mucosal hypertrophy [Unknown]
  - Gingival swelling [Unknown]
  - Osteonecrosis of jaw [Not Recovered/Not Resolved]
  - Gingival erythema [Unknown]
  - Pain in jaw [Unknown]
  - Peri-implantitis [Unknown]

NARRATIVE: CASE EVENT DATE: 201810
